FAERS Safety Report 18847692 (Version 2)
Quarter: 2021Q1

REPORT INFORMATION
  Report Type: Spontaneous
  Country: US (occurrence: US)
  Receive Date: 20210204
  Receipt Date: 20210216
  Transmission Date: 20210419
  Serious: No
  Sender: FDA-Public Use
  Company Number: US-009507513-2102USA000752

PATIENT
  Sex: Male
  Weight: 70.75 kg

DRUGS (1)
  1. KEYTRUDA [Suspect]
     Active Substance: PEMBROLIZUMAB
     Indication: NEOPLASM MALIGNANT
     Dosage: UNK
     Dates: start: 202006

REACTIONS (3)
  - Red cell distribution width abnormal [Unknown]
  - Pruritus [Unknown]
  - Weight decreased [Unknown]
